FAERS Safety Report 5672601-4 (Version None)
Quarter: 2008Q1

REPORT INFORMATION
  Report Type: 
  Country: None (occurrence: None)
  Receive Date: 20080319
  Receipt Date: 20070112
  Transmission Date: 20080703
  Serious: Yes (Hospitalization)
  Sender: FDA-Public Use
  Company Number: US-JNJFOC-20070103252

PATIENT
  Age: 36 Year
  Sex: Female

DRUGS (5)
  1. FENTANYL [Suspect]
     Indication: DRUG ADMINISTRATION ERROR
  2. HYDROMORPHONE HCL [Suspect]
     Indication: DRUG USE FOR UNKNOWN INDICATION
  3. DECONGESTANT [Concomitant]
     Indication: DRUG USE FOR UNKNOWN INDICATION
  4. ACETAMINOPHEN [Concomitant]
  5. ANTIHISTAMINE [Concomitant]

REACTIONS (4)
  - CONVERSION DISORDER [None]
  - INTENTIONAL DRUG MISUSE [None]
  - SPEECH DISORDER [None]
  - UNRESPONSIVE TO STIMULI [None]
